FAERS Safety Report 14378092 (Version 4)
Quarter: 2018Q3

REPORT INFORMATION
  Report Type: Report from Study
  Country: FR (occurrence: FR)
  Receive Date: 20180111
  Receipt Date: 20180723
  Transmission Date: 20181010
  Serious: Yes (Hospitalization)
  Sender: FDA-Public Use
  Company Number: FR-PFIZER INC-2018008387

PATIENT
  Age: 12 Year
  Sex: Female

DRUGS (24)
  1. CIPROFLOXACIN. [Concomitant]
     Active Substance: CIPROFLOXACIN
  2. VANCOMYCIN [Concomitant]
     Active Substance: VANCOMYCIN
  3. PARACETAMOL [Concomitant]
     Active Substance: ACETAMINOPHEN
  4. ONDANSETRON [Concomitant]
     Active Substance: ONDANSETRON
  5. AMBISOME [Concomitant]
     Active Substance: AMPHOTERICIN B
  6. TAZOCILLINE [Concomitant]
     Active Substance: PIPERACILLIN SODIUM\TAZOBACTAM SODIUM
  7. PEDIAVEN AP HP NOUVEAU NE 1 [Concomitant]
  8. VINCRISTINE SULFATE. [Suspect]
     Active Substance: VINCRISTINE SULFATE
     Indication: ACUTE LYMPHOCYTIC LEUKAEMIA
     Dosage: 1.9 MG, 1X/DAY
     Route: 042
     Dates: start: 20171027, end: 20171117
  9. BACTRIM [Concomitant]
     Active Substance: SULFAMETHOXAZOLE\TRIMETHOPRIM
     Indication: ANTIFUNGAL PROPHYLAXIS
  10. AMLOR [Concomitant]
     Active Substance: AMLODIPINE BESYLATE
     Indication: HYPERTENSION
  11. FRESUBIN /07459901/ [Concomitant]
     Active Substance: CARBOHYDRATES\FATTY ACIDS\MINERALS\PROTEIN\VITAMINS
  12. SMOFLIPID [Concomitant]
     Active Substance: FISH OIL\MEDIUM-CHAIN TRIGLYCERIDES\OLIVE OIL\SOYBEAN OIL
  13. CALCIDOSE /00944201/ [Concomitant]
     Active Substance: CALCIUM CARBONATE\CHOLECALCIFEROL
  14. DAUNORUBICIN [Suspect]
     Active Substance: DAUNORUBICIN
     Indication: ACUTE LYMPHOCYTIC LEUKAEMIA
     Dosage: 38 MG, 1X/DAY
     Route: 042
     Dates: start: 20171027, end: 20171117
  15. ONCASPAR [Suspect]
     Active Substance: PEGASPARGASE
     Indication: ACUTE LYMPHOCYTIC LEUKAEMIA
     Dosage: 3150 IU, 1X/DAY
     Route: 042
     Dates: start: 20171031, end: 20171031
  16. XALUPRINE [Concomitant]
     Active Substance: MERCAPTOPURINE
  17. LOXEN /00639802/ [Concomitant]
     Active Substance: NICARDIPINE HYDROCHLORIDE
     Indication: HYPERTENSION
  18. NICARDIPINE [Concomitant]
     Active Substance: NICARDIPINE
  19. DEXAMETHASONE. [Suspect]
     Active Substance: DEXAMETHASONE
     Indication: ACUTE LYMPHOCYTIC LEUKAEMIA
     Dosage: 12 MG, 1X/DAY
     Route: 048
     Dates: start: 20171027, end: 20171116
  20. ENALAPRIL [Concomitant]
     Active Substance: ENALAPRIL
  21. FUNGIZONE [Concomitant]
     Active Substance: AMPHOTERICIN B
     Indication: ANTIFUNGAL PROPHYLAXIS
  22. METHOTREXATE. [Suspect]
     Active Substance: METHOTREXATE
     Indication: ACUTE LYMPHOCYTIC LEUKAEMIA
     Dosage: 15 MG, 1X/DAY
     Route: 037
     Dates: start: 20171020, end: 20171112
  23. LANSOPRAZOLE. [Concomitant]
     Active Substance: LANSOPRAZOLE
     Indication: PROPHYLAXIS AGAINST GASTROINTESTINAL ULCER
  24. PAROEX [Concomitant]
     Active Substance: CHLORHEXIDINE GLUCONATE

REACTIONS (1)
  - Gamma-glutamyltransferase increased [Recovered/Resolved]

NARRATIVE: CASE EVENT DATE: 20171125
